FAERS Safety Report 21861871 (Version 1)
Quarter: 2023Q1

REPORT INFORMATION
  Report Type: Spontaneous
  Country: DE (occurrence: DE)
  Receive Date: 20230113
  Receipt Date: 20230113
  Transmission Date: 20230418
  Serious: Yes (Other)
  Sender: FDA-Public Use
  Company Number: DE-ANIPHARMA-2023-DE-000006

PATIENT
  Sex: Male
  Weight: 110 kg

DRUGS (2)
  1. CANDESARTAN CILEXETIL [Suspect]
     Active Substance: CANDESARTAN CILEXETIL
     Indication: Product used for unknown indication
     Dosage: 16 MG DAILY
     Route: 065
     Dates: start: 202212
  2. HYGROTON [Suspect]
     Active Substance: CHLORTHALIDONE
     Dosage: 25 MG DAILY
     Route: 065
     Dates: start: 202212

REACTIONS (2)
  - Erectile dysfunction [Unknown]
  - Vertigo [Unknown]

NARRATIVE: CASE EVENT DATE: 20221201
